FAERS Safety Report 5190971-0 (Version None)
Quarter: 2006Q4

REPORT INFORMATION
  Report Type: 
  Country: None (occurrence: None)
  Receive Date: 20061222
  Receipt Date: 20061214
  Transmission Date: 20070319
  Serious: Yes (Other)
  Sender: FDA-Public Use
  Company Number: CA-ABBOTT-06P-028-0353487-00

PATIENT
  Sex: Male

DRUGS (8)
  1. NORVIR [Suspect]
     Indication: HIV INFECTION
     Dosage: NOT REPORTED
     Route: 048
     Dates: end: 20040901
  2. NORVIR [Suspect]
     Dosage: NOT REPORTED
     Route: 048
  3. SILDENAFIL CITRATE [Interacting]
     Indication: PULMONARY HYPERTENSION
     Dosage: NOT REPORTED
     Route: 048
     Dates: start: 20060101
  4. SILDENAFIL CITRATE [Interacting]
     Dosage: NOT REPORTED
     Route: 048
  5. ATAZANAVIR [Concomitant]
     Indication: HIV INFECTION
     Dosage: NOT REPORTED
     Route: 048
     Dates: end: 20040901
  6. ATAZANAVIR [Concomitant]
     Dosage: NOT REPORTED
     Route: 048
  7. TRUVADA [Concomitant]
     Indication: HIV INFECTION
     Dosage: NOT REPORTED
     Route: 048
     Dates: end: 20040901
  8. TRUVADA [Concomitant]
     Dosage: NOT REPORTED
     Route: 048

REACTIONS (3)
  - CD4 LYMPHOCYTES DECREASED [None]
  - DRUG INTERACTION [None]
  - PULMONARY HYPERTENSION [None]
